FAERS Safety Report 17332255 (Version 37)
Quarter: 2025Q2

REPORT INFORMATION
  Report Type: Report from Study
  Country: US (occurrence: US)
  Receive Date: 20200128
  Receipt Date: 20250626
  Transmission Date: 20250716
  Serious: Yes (Hospitalization, Other)
  Sender: TAKEDA
  Company Number: US-SHIRE-US202002586

PATIENT
  Age: 71 Year
  Sex: Female
  Weight: 85 kg

DRUGS (43)
  1. HUMAN IMMUNOGLOBULIN G [Suspect]
     Active Substance: HUMAN IMMUNOGLOBULIN G
     Indication: Immunodeficiency common variable
     Dosage: 5 GRAM, 2/WEEK
     Dates: start: 20140717
  2. HUMAN IMMUNOGLOBULIN G [Suspect]
     Active Substance: HUMAN IMMUNOGLOBULIN G
     Dosage: 5 GRAM, 2/WEEK
  3. HUMAN IMMUNOGLOBULIN G [Suspect]
     Active Substance: HUMAN IMMUNOGLOBULIN G
  4. MODERNA COVID-19 VACCINE [Suspect]
     Active Substance: ELASOMERAN
     Indication: Product used for unknown indication
  5. ACETAMINOPHEN [Suspect]
     Active Substance: ACETAMINOPHEN
     Indication: Product used for unknown indication
  6. ZOSYN [Suspect]
     Active Substance: PIPERACILLIN SODIUM\TAZOBACTAM SODIUM
     Indication: Product used for unknown indication
  7. CEFEPIME [Suspect]
     Active Substance: CEFEPIME HYDROCHLORIDE
     Indication: Product used for unknown indication
  8. ACETAMINOPHEN [Concomitant]
     Active Substance: ACETAMINOPHEN
  9. COLACE [Concomitant]
     Active Substance: DOCUSATE SODIUM
  10. PRIMIDONE [Concomitant]
     Active Substance: PRIMIDONE
  11. POTASSIUM CHLORIDE [Concomitant]
     Active Substance: POTASSIUM CHLORIDE
  12. VIRTUSSIN AC [Concomitant]
     Active Substance: CODEINE PHOSPHATE\GUAIFENESIN
  13. PROTONIX [Concomitant]
     Active Substance: PANTOPRAZOLE SODIUM
  14. CALCIUM\VITAMIN D [Concomitant]
     Active Substance: CALCIUM\VITAMIN D
  15. ALBUTEROL SULFATE [Concomitant]
     Active Substance: ALBUTEROL SULFATE
  16. NORCO [Concomitant]
     Active Substance: ACETAMINOPHEN\HYDROCODONE BITARTRATE
  17. LEVOTHYROXINE [Concomitant]
     Active Substance: LEVOTHYROXINE
  18. ASPIRIN [Concomitant]
     Active Substance: ASPIRIN
  19. LIDOCAINE [Concomitant]
     Active Substance: LIDOCAINE
  20. GABAPENTIN [Concomitant]
     Active Substance: GABAPENTIN
  21. XOPENEX [Concomitant]
     Active Substance: LEVALBUTEROL HYDROCHLORIDE
  22. OXYGEN [Concomitant]
     Active Substance: OXYGEN
  23. DIPHENHYDRAMINE HYDROCHLORIDE [Concomitant]
     Active Substance: DIPHENHYDRAMINE HYDROCHLORIDE
  24. FUROSEMIDE [Concomitant]
     Active Substance: FUROSEMIDE
  25. OCUVITE [Concomitant]
     Active Substance: VITAMINS
  26. FERROUS SULFATE [Concomitant]
     Active Substance: FERROUS SULFATE
  27. DIPHENHYDRAMINE [Concomitant]
     Active Substance: DIPHENHYDRAMINE
  28. AVASTIN [Concomitant]
     Active Substance: BEVACIZUMAB
  29. METOPROLOL SUCCINATE [Concomitant]
     Active Substance: METOPROLOL SUCCINATE
  30. EPINEPHRINE [Concomitant]
     Active Substance: EPINEPHRINE
  31. AMLODIPINE BESYLATE [Concomitant]
     Active Substance: AMLODIPINE BESYLATE
  32. CELEXA [Concomitant]
     Active Substance: CITALOPRAM HYDROBROMIDE
  33. Lmx [Concomitant]
  34. IBUPROFEN [Concomitant]
     Active Substance: IBUPROFEN
  35. CODEINE PHOSPHATE\GUAIFENESIN [Concomitant]
     Active Substance: CODEINE PHOSPHATE\GUAIFENESIN
  36. ZONISAMIDE [Concomitant]
     Active Substance: ZONISAMIDE
  37. SPIRIVA [Concomitant]
     Active Substance: TIOTROPIUM BROMIDE MONOHYDRATE
  38. IRON [Concomitant]
     Active Substance: IRON
  39. BREO ELLIPTA [Concomitant]
     Active Substance: FLUTICASONE FUROATE\VILANTEROL TRIFENATATE
  40. PROLIA [Concomitant]
     Active Substance: DENOSUMAB
  41. CALCIUM [Concomitant]
     Active Substance: CALCIUM
  42. ALBUTEROL SULFATE [Concomitant]
     Active Substance: ALBUTEROL SULFATE
  43. FERROUS SULFATE [Concomitant]
     Active Substance: FERROUS SULFATE

REACTIONS (32)
  - Clostridium difficile infection [Unknown]
  - Sepsis [Unknown]
  - Pneumonia [Unknown]
  - Respiratory failure [Unknown]
  - Cannabinoid hyperemesis syndrome [Unknown]
  - COVID-19 [Unknown]
  - Vaccination complication [Unknown]
  - Macular degeneration [Unknown]
  - Fall [Unknown]
  - Shoulder fracture [Unknown]
  - Rib fracture [Unknown]
  - Cardiac failure congestive [Unknown]
  - Visual impairment [Unknown]
  - Acute kidney injury [Unknown]
  - Anaphylactic reaction [Unknown]
  - Drug hypersensitivity [Unknown]
  - Immune system disorder [Unknown]
  - Inappropriate schedule of product administration [Unknown]
  - Product dose omission issue [Unknown]
  - Insurance issue [Unknown]
  - Osteoporosis [Unknown]
  - Illness [Unknown]
  - Blood pressure decreased [Unknown]
  - Death of relative [Unknown]
  - Emotional distress [Unknown]
  - Patient-device incompatibility [Unknown]
  - Asthenia [Unknown]
  - Infusion site pruritus [Unknown]
  - Oedema [Unknown]
  - Back pain [Unknown]
  - Pyrexia [Unknown]
  - Fatigue [Unknown]

NARRATIVE: CASE EVENT DATE: 20200813
